FAERS Safety Report 5328074-4 (Version None)
Quarter: 2007Q2

REPORT INFORMATION
  Report Type: 
  Country: None (occurrence: None)
  Receive Date: 20070517
  Receipt Date: 20070510
  Transmission Date: 20071010
  Serious: Yes (Other)
  Sender: FDA-Public Use
  Company Number: US-MERCK-0705USA02249

PATIENT
  Age: 42 Year
  Sex: Male

DRUGS (2)
  1. ZOCOR [Suspect]
     Indication: HYPERCHOLESTEROLAEMIA
     Route: 048
     Dates: start: 20020101, end: 20020601
  2. ZOCOR [Suspect]
     Route: 048
     Dates: start: 20020601, end: 20030301

REACTIONS (3)
  - HYPERTRIGLYCERIDAEMIA [None]
  - MELAS SYNDROME [None]
  - SMALL INTESTINAL OBSTRUCTION [None]
